FAERS Safety Report 11142963 (Version 2)
Quarter: 2015Q3

REPORT INFORMATION
  Report Type: Spontaneous
  Country: GB (occurrence: GB)
  Receive Date: 20150525
  Receipt Date: 20150716
  Transmission Date: 20151125
  Serious: Yes (Hospitalization)
  Sender: FDA-Public Use
  Company Number: GB-JNJFOC-20150414277

PATIENT
  Sex: Male
  Weight: 10.5 kg

DRUGS (2)
  1. CALPOL [Suspect]
     Active Substance: ACETAMINOPHEN
     Route: 048
  2. CALPOL [Suspect]
     Active Substance: ACETAMINOPHEN
     Indication: NASOPHARYNGITIS
     Route: 048

REACTIONS (4)
  - Eczema [Recovered/Resolved]
  - Drug ineffective [Recovered/Resolved]
  - Dyspnoea [None]
  - Respiratory disorder [Recovered/Resolved]
